FAERS Safety Report 8612306 (Version 2)
Quarter: 2014Q1

REPORT INFORMATION
  Report Type: Spontaneous
  Country: US (occurrence: None)
  Receive Date: 20120323
  Receipt Date: 20130305
  Transmission Date: 20141002
  Serious: Yes (Other)
  Sender: FDA-Public Use
  Company Number: 163-21880-11121445

PATIENT
  Age: 84 Year
  Sex: Female
  Weight: 57.61 kg

DRUGS (7)
  1. REVLIMID [Suspect]
     Indication: MYELODYSPLASTIC SYNDROME
     Dosage: 10 MG, 1 IN 1 D, PO;
     Route: 048
     Dates: start: 20110104, end: 2011
  2. PERIACTIN (CYPROHEPTADINE HYDROCHLORIDE) (TABLETS) [Concomitant]
  3. MOBIC (MELOXICAM) (TABLETS) [Concomitant]
  4. SIMVASTATIN (TABLETS) [Concomitant]
  5. ASPIRIN (TABLETS) [Concomitant]
  6. CLARITIN (LORATADINE) (TABLETS) [Concomitant]
  7. CELEBREX (CELECOXIB) (CAPSULES) [Concomitant]

REACTIONS (1)
  - Platelet count decreased [None]
